FAERS Safety Report 8518851-0 (Version None)
Quarter: 2012Q3

REPORT INFORMATION
  Report Type: 
  Country: None (occurrence: None)
  Receive Date: 20120718
  Receipt Date: 20120717
  Transmission Date: 20120928
  Serious: Yes (Death)
  Sender: FDA-Public Use
  Company Number: PHHY2012TH061103

PATIENT
  Age: 71 Year
  Sex: Male

DRUGS (5)
  1. CALCIUM [Concomitant]
  2. MORPHINE [Concomitant]
  3. HEMATINIC [Concomitant]
  4. ZOMETA [Suspect]
     Indication: BONE CANCER METASTATIC
     Dosage: 4 MG, QMO
  5. VITAMIN TAB [Concomitant]

REACTIONS (7)
  - OSTEOPOROSIS [None]
  - NEOPLASM MALIGNANT [None]
  - NEOPLASM PROGRESSION [None]
  - LIP DRY [None]
  - OSTEOPENIA [None]
  - CHAPPED LIPS [None]
  - APHAGIA [None]
